FAERS Safety Report 4522015-5 (Version None)
Quarter: 2004Q4

REPORT INFORMATION
  Report Type: 
  Country: None (occurrence: None)
  Receive Date: 20041207
  Receipt Date: 20041207
  Transmission Date: 20050328
  Serious: Yes (Hospitalization)
  Sender: FDA-Public Use
  Company Number: None

PATIENT
  Age: 14 Year
  Sex: Female
  Weight: 54 kg

DRUGS (1)
  1. DIMETAPP [Suspect]
     Indication: RESPIRATORY TRACT CONGESTION
     Dosage: ONCE ORAL
     Route: 048
     Dates: start: 20041205, end: 20041205

REACTIONS (4)
  - CONFUSIONAL STATE [None]
  - DELIRIUM [None]
  - HALLUCINATION [None]
  - PSYCHOTIC DISORDER [None]
